FAERS Safety Report 11689923 (Version 1)
Quarter: 2015Q4

REPORT INFORMATION
  Report Type: Spontaneous
  Country: US (occurrence: None)
  Receive Date: 20151030
  Receipt Date: 20151030
  Transmission Date: 20160304
  Serious: Yes (Death)
  Sender: FDA-Public Use
  Company Number: None

PATIENT
  Age: 56 Year
  Sex: Female

DRUGS (1)
  1. BOTOX [Suspect]
     Active Substance: ONABOTULINUMTOXINA
     Dosage: 200U  EVERY 3 MONTHS  SQ
     Route: 058
     Dates: start: 20150526, end: 20151028

REACTIONS (1)
  - Death [None]

NARRATIVE: CASE EVENT DATE: 20151028
